FAERS Safety Report 4990163-1 (Version None)
Quarter: 2006Q2

REPORT INFORMATION
  Report Type: 
  Country: None (occurrence: None)
  Receive Date: 20060503
  Receipt Date: 20041013
  Transmission Date: 20061013
  Serious: Yes (Hospitalization)
  Sender: FDA-Public Use
  Company Number: US-MERCK-0410USA02592

PATIENT
  Age: 44 Year
  Sex: Male
  Weight: 118 kg

DRUGS (4)
  1. VIOXX [Suspect]
     Indication: MONARTHRITIS
     Route: 048
     Dates: start: 20001027, end: 20010409
  2. VIOXX [Suspect]
     Route: 048
     Dates: start: 20020417, end: 20030523
  3. VIOXX [Suspect]
     Route: 048
     Dates: start: 20031112, end: 20040930
  4. NEXIUM [Concomitant]
     Route: 065

REACTIONS (8)
  - ADVERSE EVENT [None]
  - ANGINA PECTORIS [None]
  - ARTHRALGIA [None]
  - BRONCHITIS [None]
  - CHEST PAIN [None]
  - ELECTROCARDIOGRAM ST-T CHANGE [None]
  - ROAD TRAFFIC ACCIDENT [None]
  - SLEEP APNOEA SYNDROME [None]
